FAERS Safety Report 25391476 (Version 1)
Quarter: 2025Q2

REPORT INFORMATION
  Report Type: Spontaneous
  Country: CN (occurrence: CN)
  Receive Date: 20250603
  Receipt Date: 20250603
  Transmission Date: 20250717
  Serious: Yes (Other)
  Sender: ROCHE
  Company Number: CN-ROCHE-10000296622

PATIENT

DRUGS (1)
  1. POLIVY [Suspect]
     Active Substance: POLATUZUMAB VEDOTIN-PIIQ
     Indication: Product used for unknown indication
     Route: 065

REACTIONS (6)
  - Night sweats [Unknown]
  - Hyperpyrexia [Unknown]
  - Decreased appetite [Unknown]
  - Nausea [Unknown]
  - Hypersensitivity [Unknown]
  - White blood cell count decreased [Unknown]
